FAERS Safety Report 7693176-4 (Version None)
Quarter: 2011Q3

REPORT INFORMATION
  Report Type: 
  Country: None (occurrence: None)
  Receive Date: 20110816
  Receipt Date: 20110802
  Transmission Date: 20111222
  Serious: Yes (Disabling)
  Sender: FDA-Public Use
  Company Number: JP-2011-11004

PATIENT
  Age: 85 Year
  Sex: Female
  Weight: 35 kg

DRUGS (12)
  1. ARICEPT [Concomitant]
  2. CALLBLOCK (AZELNIDIPINE) [Concomitant]
  3. NAUZELIN (DOMPERIDONE) [Concomitant]
  4. NORVASC [Concomitant]
  5. LASIX [Suspect]
     Indication: DIURETIC THERAPY
     Dosage: 20 MG MILLIGRAM(S), DAILY DOSE, IV DRIP
     Route: 041
     Dates: start: 20110611, end: 20110617
  6. HANP (CARPERITIDE(GENETICAL RECOMBINATION)) [Concomitant]
  7. ASPIRIN [Concomitant]
  8. SEISHOKU (ISOTONIC SODIUM CHLORIDE SOUTION) [Concomitant]
  9. WARFARIN (WARFARIN POTASSIUM) [Concomitant]
  10. SAMSCA [Suspect]
     Indication: CARDIAC FAILURE
     Dosage: 15 MG MILLIGRAM(S), QD, ORAL
     Route: 048
     Dates: start: 20110619, end: 20110619
  11. ENALAPRIL MALEATE [Concomitant]
  12. ZANTAC [Concomitant]

REACTIONS (10)
  - BLOOD BICARBONATE INCREASED [None]
  - PCO2 INCREASED [None]
  - HAEMODILUTION [None]
  - HYPERNATRAEMIA [None]
  - HAEMOGLOBIN DECREASED [None]
  - PO2 DECREASED [None]
  - PO2 INCREASED [None]
  - RESPIRATORY DISORDER [None]
  - ALTERED STATE OF CONSCIOUSNESS [None]
  - BLOOD PH INCREASED [None]
